FAERS Safety Report 8357859-5 (Version None)
Quarter: 2012Q2

REPORT INFORMATION
  Report Type: 
  Country: None (occurrence: None)
  Receive Date: 20120514
  Receipt Date: 20120502
  Transmission Date: 20120825
  Serious: Yes (Other)
  Sender: FDA-Public Use
  Company Number: BE-CELGENEUS-013-21880-12010226

PATIENT
  Sex: Female
  Weight: 53 kg

DRUGS (5)
  1. REVLIMID [Suspect]
     Indication: B-CELL LYMPHOMA
     Dosage: 20 MILLIGRAM
     Route: 048
     Dates: start: 20111011, end: 20111206
  2. PANTOPRAZOLE [Concomitant]
     Route: 065
     Dates: start: 20110501
  3. LEVOTHYROXINE SODIUM [Concomitant]
     Route: 065
     Dates: start: 20020301
  4. BETAHISTINE [Concomitant]
     Indication: OESOPHAGITIS
     Route: 065
     Dates: start: 20101101
  5. MICHOL [Concomitant]
     Indication: RHEUMATOID ARTHRITIS
     Route: 065
     Dates: start: 20020901

REACTIONS (1)
  - TRANSITIONAL CELL CARCINOMA [None]
